FAERS Safety Report 9624166 (Version 2)
Quarter: 2013Q4

REPORT INFORMATION
  Report Type: Spontaneous
  Country: AR (occurrence: AR)
  Receive Date: 20131015
  Receipt Date: 20131015
  Transmission Date: 20140711
  Serious: Yes (Hospitalization)
  Sender: FDA-Public Use
  Company Number: AR-CUBIST PHARMACEUTICALS, INC.-2013CBST000476

PATIENT
  Sex: 0

DRUGS (3)
  1. CUBICIN [Suspect]
     Indication: STAPHYLOCOCCAL INFECTION
     Dosage: 50 MG, UNK
     Route: 042
     Dates: start: 20130409
  2. CUBICIN [Suspect]
     Indication: DEVICE RELATED INFECTION
     Dosage: 0.71 MG/KG, UNK
     Route: 042
     Dates: start: 20130409
  3. CUBICIN [Suspect]
     Indication: OFF LABEL USE

REACTIONS (3)
  - Pain [Recovered/Resolved]
  - Infection [Unknown]
  - Pyrexia [Unknown]
